FAERS Safety Report 17271604 (Version 1)
Quarter: 2020Q1

REPORT INFORMATION
  Report Type: Spontaneous
  Country: US (occurrence: US)
  Receive Date: 20200115
  Receipt Date: 20200115
  Transmission Date: 20200409
  Serious: Yes (Death, Hospitalization, Other)
  Sender: FDA-Public Use
  Company Number: US-APOTEX-2020AP005903

PATIENT
  Age: 23 Year
  Sex: Male

DRUGS (2)
  1. COCAINE [Suspect]
     Active Substance: COCAINE
     Indication: PRODUCT USED FOR UNKNOWN INDICATION
     Dosage: UNK, VIA INHALATION ROUTE
     Route: 055
  2. ALPRAZOLAM. [Suspect]
     Active Substance: ALPRAZOLAM
     Indication: PRODUCT USED FOR UNKNOWN INDICATION
     Dosage: UNK, VIA INHALATION ROUTE
     Route: 055

REACTIONS (1)
  - Drug abuse [Fatal]
